FAERS Safety Report 5536345-1 (Version None)
Quarter: 2007Q4

REPORT INFORMATION
  Report Type: 
  Country: None (occurrence: None)
  Receive Date: 20071206
  Receipt Date: 20071129
  Transmission Date: 20080405
  Serious: Yes (Death)
  Sender: FDA-Public Use
  Company Number: RO-ABBOTT-07P-135-0423032-00

PATIENT
  Sex: Female
  Weight: 40 kg

DRUGS (3)
  1. KALETRA [Suspect]
     Indication: ACQUIRED IMMUNODEFICIENCY SYNDROME
     Dosage: 200MG/100MG
     Route: 048
     Dates: start: 20070601, end: 20070622
  2. KALETRA [Suspect]
     Indication: DRUG USE FOR UNKNOWN INDICATION
     Dates: start: 20030401, end: 20070601
  3. LAMIVUDINE + ZIDOVUDINE [Concomitant]
     Indication: ACQUIRED IMMUNODEFICIENCY SYNDROME
     Route: 048
     Dates: start: 20030401, end: 20070622

REACTIONS (2)
  - PATHOGEN RESISTANCE [None]
  - PULMONARY TUBERCULOSIS [None]
